FAERS Safety Report 20500608 (Version 3)
Quarter: 2022Q4

REPORT INFORMATION
  Report Type: Spontaneous
  Country: US (occurrence: US)
  Receive Date: 20220222
  Receipt Date: 20221107
  Transmission Date: 20230112
  Serious: No
  Sender: FDA-Public Use
  Company Number: US-SA-SAC20220216001416

PATIENT
  Age: 41 Year
  Sex: Female

DRUGS (3)
  1. DUPIXENT [Suspect]
     Active Substance: DUPILUMAB
     Indication: Dermatitis atopic
     Dosage: 300 MG, QOW
     Route: 058
     Dates: start: 202202
  2. DUPIXENT [Suspect]
     Active Substance: DUPILUMAB
     Indication: Personality disorder
  3. DUPIXENT [Suspect]
     Active Substance: DUPILUMAB
     Indication: Behaviour disorder

REACTIONS (4)
  - Pruritus [Unknown]
  - Urticaria [Unknown]
  - Injection site pruritus [Unknown]
  - Product use in unapproved indication [Unknown]
